FAERS Safety Report 10157570 (Version 1)
Quarter: 2014Q2

REPORT INFORMATION
  Report Type: Report from Study
  Country: AU (occurrence: AU)
  Receive Date: 20140507
  Receipt Date: 20140507
  Transmission Date: 20141212
  Serious: Yes (Other)
  Sender: FDA-Public Use
  Company Number: PHHY2014AU054273

PATIENT
  Age: 32 Year
  Sex: Male

DRUGS (3)
  1. CLOZARIL [Suspect]
     Indication: SCHIZOPHRENIA
     Dosage: UNK
     Dates: start: 2003, end: 2004
  2. CLOZARIL [Suspect]
     Dosage: UNK
     Dates: start: 2004
  3. OLANZAPINE [Suspect]
     Indication: SCHIZOPHRENIA
     Dosage: 40 MG, UNK
     Dates: start: 2004

REACTIONS (3)
  - Mental impairment [Unknown]
  - Blood triglycerides increased [Unknown]
  - Red blood cell count decreased [Unknown]
